FAERS Safety Report 8906937 (Version 3)
Quarter: 2014Q2

REPORT INFORMATION
  Report Type: Spontaneous
  Country: US (occurrence: US)
  Receive Date: 20121114
  Receipt Date: 20140411
  Transmission Date: 20141212
  Serious: Yes (Hospitalization)
  Sender: FDA-Public Use
  Company Number: US-BAYER-2012-116705

PATIENT
  Age: 24 Year
  Sex: Female
  Weight: 65.76 kg

DRUGS (5)
  1. YAZ [Suspect]
     Indication: CONTRACEPTION
     Dosage: UNK
     Dates: start: 20070831
  2. SKELAXIN [Concomitant]
  3. REGLAN [Concomitant]
  4. PERCOCET [Concomitant]
  5. TORADOL [Concomitant]

REACTIONS (9)
  - Cholecystectomy [None]
  - Pain [None]
  - Injury [None]
  - General physical health deterioration [None]
  - Anxiety [None]
  - Anhedonia [None]
  - Emotional distress [None]
  - Pain [None]
  - Cholecystitis chronic [None]
